FAERS Safety Report 6759146-5 (Version None)
Quarter: 2010Q2

REPORT INFORMATION
  Report Type: 
  Country: None (occurrence: None)
  Receive Date: 20100524
  Receipt Date: 20100318
  Transmission Date: 20101027
  Serious: No
  Sender: FDA-Public Use
  Company Number: 007897

PATIENT
  Sex: Female
  Weight: 50.3 kg

DRUGS (3)
  1. CIMZIA [Suspect]
     Indication: CROHN'S DISEASE
     Dosage: (SUBCUTANEOUS)
     Route: 058
  2. AMBIEN [Concomitant]
  3. PROMETHAZINE [Concomitant]

REACTIONS (1)
  - PREGNANCY [None]
